FAERS Safety Report 15130988 (Version 1)
Quarter: 2018Q3

REPORT INFORMATION
  Report Type: Spontaneous
  Country: AR (occurrence: AR)
  Receive Date: 20180711
  Receipt Date: 20180711
  Transmission Date: 20181010
  Serious: Yes (Death)
  Sender: FDA-Public Use
  Company Number: PHHY2018AR043359

PATIENT
  Age: 65 Year
  Sex: Male

DRUGS (1)
  1. DEXTRAN 70, HYPROMELLOSE 2910 [Suspect]
     Active Substance: DEXTRAN 70\HYPROMELLOSE 2910 (4000 MPA.S)
     Indication: DRY EYE
     Route: 047

REACTIONS (2)
  - Infarction [Fatal]
  - Hypertension [Unknown]

NARRATIVE: CASE EVENT DATE: 20040517
